FAERS Safety Report 5050317-5 (Version None)
Quarter: 2006Q3

REPORT INFORMATION
  Report Type: 
  Country: None (occurrence: None)
  Receive Date: 20060706
  Receipt Date: 20060620
  Transmission Date: 20061208
  Serious: Yes (Hospitalization)
  Sender: FDA-Public Use
  Company Number: 2006PV015973

PATIENT
  Age: 66 Year
  Sex: Female
  Weight: 86.1834 kg

DRUGS (9)
  1. BYETTA [Suspect]
     Indication: DIABETES MELLITUS NON-INSULIN-DEPENDENT
     Dosage: 5 MCG; BID; SC
     Route: 058
     Dates: start: 20060601
  2. GLIMEPIRIDE [Concomitant]
  3. AMIODARONE HCL [Concomitant]
  4. TRICOR [Concomitant]
  5. ISOSORBIDE [Concomitant]
  6. LASIX [Concomitant]
  7. SYNTHROID [Concomitant]
  8. METOCLOPRAMIDE [Concomitant]
  9. NEXIUM [Concomitant]

REACTIONS (6)
  - BLOOD POTASSIUM DECREASED [None]
  - CONDITION AGGRAVATED [None]
  - EXCORIATION [None]
  - FALL [None]
  - VENTRICULAR TACHYCARDIA [None]
  - WEIGHT DECREASED [None]
